FAERS Safety Report 16954805 (Version 2)
Quarter: 2019Q4

REPORT INFORMATION
  Report Type: Report from Study
  Country: None (occurrence: ES)
  Receive Date: 20191024
  Receipt Date: 20191027
  Transmission Date: 20200122
  Serious: Yes (Death, Life-Threatening, Hospitalization, Disabling, Other)
  Sender: FDA-Public Use
  Company Number: ES-ABBVIE-18P-144-2570130-00

PATIENT
  Age: 35 Year
  Sex: Female
  Weight: 60 kg

DRUGS (28)
  1. AZATHIOPRINE. [Suspect]
     Active Substance: AZATHIOPRINE
     Indication: COLITIS ULCERATIVE
     Route: 048
     Dates: start: 20140108, end: 20150715
  2. MAGNESIO [Concomitant]
     Route: 048
     Dates: start: 20170705
  3. TOFACITINIB [Concomitant]
     Active Substance: TOFACITINIB
     Route: 048
     Dates: start: 20181008
  4. IDEOS UNIDIA [Concomitant]
     Active Substance: CALCIUM CARBONATE\CHOLECALCIFEROL
     Indication: STEROID THERAPY
  5. CICLOSPORINA [Concomitant]
     Active Substance: CYCLOSPORINE
     Route: 048
     Dates: start: 20170705
  6. OMEPRAZOL [Concomitant]
     Active Substance: OMEPRAZOLE
     Indication: PROPHYLAXIS
     Route: 048
     Dates: start: 20140217
  7. CICLOSPORINA [Concomitant]
     Active Substance: CYCLOSPORINE
     Route: 048
     Dates: start: 20170621, end: 20170705
  8. HIERRO (II) SULFATO [Concomitant]
     Indication: COLITIS ULCERATIVE
     Dosage: FASTING: BEFORE BREAKFAST
     Route: 048
     Dates: start: 20170609
  9. AZATHIOPRINE. [Suspect]
     Active Substance: AZATHIOPRINE
     Route: 048
     Dates: start: 20150716
  10. OMEPRAZOL [Concomitant]
     Active Substance: OMEPRAZOLE
     Route: 048
     Dates: start: 20170513, end: 20170621
  11. SALOFALK [Concomitant]
     Indication: COLITIS ULCERATIVE
     Route: 054
     Dates: start: 20140909
  12. ACIDO FOLICO/CIANOCOBALAMINA [Concomitant]
     Indication: PREGNANCY
     Route: 048
     Dates: start: 20170509
  13. CLIPPER [Concomitant]
     Active Substance: BECLOMETHASONE DIPROPIONATE
     Indication: COLITIS ULCERATIVE
     Route: 048
     Dates: start: 20130521
  14. TARDYFERON [Concomitant]
     Active Substance: FERROUS SULFATE
     Indication: BLOOD IRON DECREASED
     Route: 048
     Dates: start: 20140909
  15. BUDESONIDA [Concomitant]
     Indication: COLITIS ULCERATIVE
     Dosage: EVERY NIGHT
     Route: 054
     Dates: start: 20170527
  16. YODOCEFOL [Concomitant]
     Active Substance: CYANOCOBALAMIN\FOLIC ACID\POTASSIUM IODIDE
     Indication: PROPHYLAXIS
     Dosage: 200/400/2 MCG; MCG (MICROGRAM(S))
     Route: 048
     Dates: start: 20170118
  17. DEFLAZACORT [Concomitant]
     Active Substance: DEFLAZACORT
     Indication: COLITIS ULCERATIVE
     Route: 048
     Dates: start: 20170519
  18. CICLOSPORINA [Concomitant]
     Active Substance: CYCLOSPORINE
     Indication: COLITIS ULCERATIVE
     Route: 040
     Dates: start: 20170530, end: 20170612
  19. CALCIO CARBONATO/COLECALCIFEROL [Concomitant]
     Indication: PROPHYLAXIS
     Route: 048
     Dates: start: 20170531
  20. CALCIO CARBONATO/COLECALCIFEROL [Concomitant]
     Indication: STEROID THERAPY
  21. MAGNESIO [Concomitant]
     Indication: PREGNANCY
     Route: 048
     Dates: start: 20170612, end: 20170705
  22. CICLOSPORINA [Concomitant]
     Active Substance: CYCLOSPORINE
     Route: 048
     Dates: start: 20170613, end: 20170621
  23. TOFACITINIB [Concomitant]
     Active Substance: TOFACITINIB
     Route: 048
     Dates: start: 20180621, end: 20181008
  24. HUMIRA [Suspect]
     Active Substance: ADALIMUMAB
     Indication: COLITIS ULCERATIVE
     Route: 058
     Dates: start: 20140730, end: 20170510
  25. DEZACOR [Concomitant]
     Active Substance: DEFLAZACORT
     Indication: COLITIS ULCERATIVE
     Route: 048
     Dates: start: 20130906
  26. IDEOS UNIDIA [Concomitant]
     Active Substance: CALCIUM CARBONATE\CHOLECALCIFEROL
     Indication: OSTEOPOROSIS PROPHYLAXIS
     Dosage: 1000MG/880UI
     Route: 048
     Dates: start: 20140217
  27. SULFASALAZINA [Concomitant]
     Active Substance: SULFASALAZINE
     Indication: COLITIS ULCERATIVE
     Route: 048
     Dates: start: 20170116
  28. TOFACITINIB [Concomitant]
     Active Substance: TOFACITINIB
     Indication: COLITIS ULCERATIVE
     Route: 048
     Dates: start: 20180423, end: 20180620

REACTIONS (2)
  - Metaplastic breast carcinoma [Unknown]
  - Malignant neoplasm progression [Fatal]

NARRATIVE: CASE EVENT DATE: 20181001
